FAERS Safety Report 9944650 (Version 1)
Quarter: 2014Q1

REPORT INFORMATION
  Report Type: Report from Study
  Country: US (occurrence: US)
  Receive Date: 20140303
  Receipt Date: 20140303
  Transmission Date: 20141002
  Serious: No
  Sender: FDA-Public Use
  Company Number: US-ABBVIE-13P-163-1048555-00

PATIENT
  Age: 34 Year
  Sex: Female

DRUGS (7)
  1. HUMIRA [Suspect]
     Indication: COLITIS ULCERATIVE
     Dates: start: 20121122
  2. ATENOLOL [Concomitant]
     Indication: BLOOD PRESSURE
  3. LISINOPRIL [Concomitant]
     Indication: BLOOD PRESSURE
  4. PREVACID [Concomitant]
     Indication: GASTROINTESTINAL DISORDER
  5. BENTYL [Concomitant]
     Indication: ABDOMINAL PAIN UPPER
     Dosage: ONE OR TWO TIMES ONCE A DAY
  6. IMITREX [Concomitant]
     Indication: MIGRAINE
  7. ELAVIL [Concomitant]
     Indication: DEPRESSION

REACTIONS (2)
  - Weight increased [Not Recovered/Not Resolved]
  - Injection site rash [Recovered/Resolved with Sequelae]
